FAERS Safety Report 4577973-X (Version None)
Quarter: 2005Q1

REPORT INFORMATION
  Report Type: 
  Country: None (occurrence: None)
  Receive Date: 20050211
  Receipt Date: 20050131
  Transmission Date: 20050727
  Serious: Yes (Other)
  Sender: FDA-Public Use
  Company Number: US-JNJFOC-20050200621

PATIENT
  Weight: 63.5 kg

DRUGS (5)
  1. REMICADE [Suspect]
     Route: 042
  2. REMICADE [Suspect]
     Indication: RHEUMATOID ARTHRITIS
     Route: 042
  3. METHOTREXATE [Concomitant]
  4. LOPRESSOR [Concomitant]
  5. MEDROL [Concomitant]

REACTIONS (2)
  - GASTRIC DISORDER [None]
  - GASTRIC ULCER [None]
